FAERS Safety Report 5691120-2 (Version None)
Quarter: 2008Q2

REPORT INFORMATION
  Report Type: 
  Country: None (occurrence: None)
  Receive Date: 20080401
  Receipt Date: 20080324
  Transmission Date: 20081010
  Serious: Yes (Other)
  Sender: FDA-Public Use
  Company Number: US-GENENTECH-258295

PATIENT
  Age: 57 Year
  Sex: Male

DRUGS (1)
  1. AVASTIN [Suspect]
     Indication: PANCREATIC CARCINOMA
     Dosage: UNK, UNK

REACTIONS (1)
  - CHOLANGITIS [None]
